FAERS Safety Report 6449887-1 (Version None)
Quarter: 2009Q4

REPORT INFORMATION
  Report Type: 
  Country: None (occurrence: None)
  Receive Date: 20091123
  Receipt Date: 20091118
  Transmission Date: 20100525
  Serious: Yes (Hospitalization, Other)
  Sender: FDA-Public Use
  Company Number: NL-BIOGENIDEC-2009BI036808

PATIENT
  Age: 27 Year
  Sex: Female

DRUGS (1)
  1. AVONEX [Suspect]
     Indication: MULTIPLE SCLEROSIS
     Route: 030
     Dates: start: 20090622

REACTIONS (3)
  - LOSS OF CONSCIOUSNESS [None]
  - MULTIPLE SCLEROSIS RELAPSE [None]
  - SHOCK [None]
